FAERS Safety Report 20324515 (Version 2)
Quarter: 2022Q1

REPORT INFORMATION
  Report Type: Report from Study
  Country: GR (occurrence: GR)
  Receive Date: 20220111
  Receipt Date: 20220207
  Transmission Date: 20220423
  Serious: Yes (Death, Life-Threatening, Hospitalization, Other)
  Sender: FDA-Public Use
  Company Number: GR-BRISTOL-MYERS SQUIBB COMPANY-BMS-2022-002879

PATIENT
  Age: 72 Year
  Sex: Male
  Weight: 86 kg

DRUGS (19)
  1. PLACEBO [Suspect]
     Active Substance: UNSPECIFIED INGREDIENT
     Indication: Bladder cancer
     Dosage: 1 TAB
     Route: 065
     Dates: start: 20210906
  2. NIVOLUMAB [Suspect]
     Active Substance: NIVOLUMAB
     Indication: Bladder cancer
     Dosage: 360 MILLIGRAM
     Route: 042
     Dates: start: 20210906
  3. CISPLATIN [Suspect]
     Active Substance: CISPLATIN
     Indication: Bladder cancer
     Dosage: 139.3 MILLIGRAM
     Route: 065
     Dates: start: 20210906
  4. GEMCITABINE HYDROCHLORIDE [Suspect]
     Active Substance: GEMCITABINE HYDROCHLORIDE
     Indication: Bladder cancer
     Dosage: 1990 MILLIGRAM
     Route: 065
     Dates: start: 20210906
  5. EXFORGE [Concomitant]
     Active Substance: AMLODIPINE BESYLATE\VALSARTAN
     Indication: Product used for unknown indication
     Dosage: 170 MILLIGRAM
     Route: 048
     Dates: start: 2016
  6. ONDANSETRON [Concomitant]
     Active Substance: ONDANSETRON
     Indication: Product used for unknown indication
     Dosage: 8 MILLIGRAM
     Route: 042
     Dates: start: 20210906, end: 20210906
  7. ONDANSETRON [Concomitant]
     Active Substance: ONDANSETRON
     Dosage: 8 MILLIGRAM
     Route: 042
     Dates: start: 20210914, end: 20210914
  8. ONDANSETRON [Concomitant]
     Active Substance: ONDANSETRON
     Dosage: 8 MILLIGRAM
     Route: 042
     Dates: start: 20210928, end: 20210928
  9. ONDANSETRON [Concomitant]
     Active Substance: ONDANSETRON
     Dosage: 8 MILLIGRAM
     Route: 042
     Dates: start: 20211005, end: 20211005
  10. ONDANSETRON [Concomitant]
     Active Substance: ONDANSETRON
     Dosage: 8 MILLIGRAM
     Route: 042
     Dates: start: 20211019, end: 20211019
  11. ONDANSETRON [Concomitant]
     Active Substance: ONDANSETRON
     Dosage: 8 MILLIGRAM
     Route: 042
     Dates: start: 20211026, end: 20211026
  12. ONDANSETRON [Concomitant]
     Active Substance: ONDANSETRON
     Dosage: 8 MILLIGRAM
     Route: 042
     Dates: start: 20211111, end: 20211111
  13. DEXAMETHASONE [Concomitant]
     Active Substance: DEXAMETHASONE
     Indication: Product used for unknown indication
     Dosage: 8 MILLIGRAM
     Route: 042
     Dates: start: 20210906, end: 20210906
  14. DEXAMETHASONE [Concomitant]
     Active Substance: DEXAMETHASONE
     Dosage: 8 MILLIGRAM
     Route: 042
     Dates: start: 20210928, end: 20210928
  15. DEXAMETHASONE [Concomitant]
     Active Substance: DEXAMETHASONE
     Dosage: 8 MILLIGRAM
     Route: 042
     Dates: start: 20211019, end: 20211019
  16. ENOXAPARIN SODIUM [Concomitant]
     Active Substance: ENOXAPARIN SODIUM
     Indication: Product used for unknown indication
     Dosage: 1 DOSAGE FORM: 16000 UNITS NOS
     Route: 058
     Dates: start: 20211118
  17. ATORVASTATIN [Concomitant]
     Active Substance: ATORVASTATIN
     Indication: Product used for unknown indication
     Dosage: 20 MILLIGRAM
     Route: 048
     Dates: start: 2018
  18. COVID-19 VACCINE [Concomitant]
     Indication: Prophylaxis
     Dosage: UNKNOWN
     Route: 030
     Dates: start: 2021
  19. DEXAMETHASONE [Concomitant]
     Active Substance: DEXAMETHASONE
     Indication: Product used for unknown indication
     Dosage: 8 MILLIGRAM
     Route: 042
     Dates: start: 20211111, end: 20211111

REACTIONS (2)
  - Cardiac arrest [Fatal]
  - Pyelonephritis [Not Recovered/Not Resolved]

NARRATIVE: CASE EVENT DATE: 20220104
